FAERS Safety Report 15076396 (Version 1)
Quarter: 2018Q2

REPORT INFORMATION
  Report Type: Spontaneous
  Country: US (occurrence: US)
  Receive Date: 20180627
  Receipt Date: 20180627
  Transmission Date: 20180711
  Serious: No
  Sender: FDA-Public Use
  Company Number: US-MYLANLABS-2018M1043849

PATIENT
  Sex: Female

DRUGS (1)
  1. LIDOCAINE PATCH [Suspect]
     Active Substance: LIDOCAINE
     Indication: PAIN
     Route: 003

REACTIONS (4)
  - Product adhesion issue [Recovering/Resolving]
  - Product use in unapproved indication [Unknown]
  - Product quality issue [Recovering/Resolving]
  - No adverse event [Unknown]
